FAERS Safety Report 6739073-X (Version None)
Quarter: 2010Q2

REPORT INFORMATION
  Report Type: 
  Country: None (occurrence: None)
  Receive Date: 20100525
  Receipt Date: 20100519
  Transmission Date: 20101027
  Serious: Yes (Hospitalization)
  Sender: FDA-Public Use
  Company Number: US-BIOGENIDEC-2010BI010954

PATIENT
  Age: 66 Year
  Sex: Male
  Weight: 70 kg

DRUGS (33)
  1. TYSABRI [Suspect]
     Indication: MULTIPLE SCLEROSIS
     Route: 042
     Dates: start: 20090828
  2. CARVEDILOL [Concomitant]
     Indication: HYPERTENSION
     Route: 048
     Dates: start: 20070626
  3. TAMSULOSIN HCL [Concomitant]
     Indication: BENIGN PROSTATIC HYPERPLASIA
     Route: 048
     Dates: start: 20070626
  4. ASCORBIC ACID [Concomitant]
     Indication: SUPPLEMENTATION THERAPY
     Route: 048
     Dates: start: 20090302
  5. NIACIN [Concomitant]
     Indication: HYPERCHOLESTEROLAEMIA
     Route: 048
     Dates: start: 20100127
  6. BENAZEPRIL HYDROCHLORIDE [Concomitant]
     Indication: HYPERTENSION
     Route: 048
     Dates: start: 20070626
  7. ALBUTEROL [Concomitant]
     Indication: BRONCHITIS
     Route: 055
     Dates: start: 20090623
  8. ASPIRIN [Concomitant]
     Indication: ISCHAEMIC HEART DISEASE PROPHYLAXIS
     Route: 048
     Dates: start: 20070626
  9. BACLOFEN [Concomitant]
     Indication: MUSCLE SPASTICITY
     Route: 048
     Dates: start: 20080206
  10. BISACODYL [Concomitant]
     Indication: CONSTIPATION
     Route: 054
     Dates: start: 20090302
  11. CALCIUM CARBONATE [Concomitant]
     Indication: ANTACID THERAPY
     Route: 048
     Dates: start: 20100322
  12. CAPSAICIN [Concomitant]
     Route: 061
  13. VIT D3 [Concomitant]
     Indication: OSTEOPOROSIS
     Route: 048
     Dates: start: 20100121
  14. CITALOPRAM HYDROBROMIDE [Concomitant]
     Indication: DEPRESSION
     Route: 048
     Dates: start: 20070626
  15. FLUTICAS SALMETEROL [Concomitant]
     Indication: ASTHMA
     Route: 055
  16. GABAPENTIN [Concomitant]
     Indication: NEURALGIA
     Route: 048
     Dates: start: 20070626
  17. HYDROCORTISONE [Concomitant]
     Route: 061
  18. IPRATROPIUM BROMIDE [Concomitant]
     Route: 055
  19. LIDOCAINE [Concomitant]
     Route: 062
  20. METHYLPHENIDATE HCL [Concomitant]
     Indication: FATIGUE
     Route: 048
     Dates: start: 20071127
  21. MUPIROCIN [Concomitant]
     Route: 061
  22. OMEPRAZOLE [Concomitant]
     Indication: GASTROOESOPHAGEAL REFLUX DISEASE
     Route: 048
     Dates: start: 20071127
  23. POLYETHYLENE GLYCOL [Concomitant]
     Indication: CONSTIPATION
     Route: 048
     Dates: start: 20100308
  24. SELENIUM SULFIDE [Concomitant]
     Route: 061
  25. SENNOSIDES [Concomitant]
     Indication: CONSTIPATION
     Route: 048
     Dates: start: 20100305
  26. SIMVASTATIN [Concomitant]
     Indication: HYPERCHOLESTEROLAEMIA
     Route: 048
     Dates: start: 20070626
  27. TEMAZEPAM [Concomitant]
     Indication: INSOMNIA
     Route: 048
     Dates: start: 20070626
  28. TYLENOL [Concomitant]
     Indication: PAIN
     Route: 048
     Dates: start: 20090210
  29. DOCUSATE [Concomitant]
     Indication: CONSTIPATION
     Route: 048
     Dates: start: 20090302
  30. MOMETASONE FUROATE [Concomitant]
     Indication: BRONCHITIS
     Dosage: DOSE UNIT:220
     Route: 055
     Dates: start: 20091001
  31. MULTI-VITAMINS [Concomitant]
     Indication: SUPPLEMENTATION THERAPY
     Route: 048
     Dates: start: 20080626
  32. VICODIN [Concomitant]
     Indication: PAIN
     Route: 048
     Dates: start: 20080206
  33. FAMCICLOVIR [Concomitant]
     Indication: VIRAL INFECTION
     Route: 048
     Dates: start: 20100319

REACTIONS (2)
  - HAEMATURIA [None]
  - UROSEPSIS [None]
